FAERS Safety Report 5195406-X (Version None)
Quarter: 2006Q4

REPORT INFORMATION
  Report Type: 
  Country: None (occurrence: None)
  Receive Date: 20061229
  Receipt Date: 20061221
  Transmission Date: 20070319
  Serious: Yes (Other)
  Sender: FDA-Public Use
  Company Number: JP-PFIZER INC-2006155857

PATIENT
  Age: 55 Year
  Sex: Female

DRUGS (4)
  1. PHENYTOIN [Suspect]
  2. GABAPEN [Suspect]
     Dosage: DAILY DOSE:600MG
     Route: 048
     Dates: start: 20061031, end: 20061031
  3. PHENOBARBITAL TAB [Concomitant]
  4. VALPROATE SODIUM [Concomitant]

REACTIONS (2)
  - ANTICONVULSANT TOXICITY [None]
  - DIZZINESS [None]
